FAERS Safety Report 4772909-0 (Version None)
Quarter: 2005Q3

REPORT INFORMATION
  Report Type: 
  Country: None (occurrence: None)
  Receive Date: 20050916
  Receipt Date: 20050906
  Transmission Date: 20060218
  Serious: Yes (Other)
  Sender: FDA-Public Use
  Company Number: 2005S1000264

PATIENT

DRUGS (1)
  1. ACITRETIN (ACITRETIN) [Suspect]

REACTIONS (1)
  - RENAL FAILURE ACUTE [None]
